FAERS Safety Report 23861519 (Version 2)
Quarter: 2025Q3

REPORT INFORMATION
  Report Type: Spontaneous
  Country: US (occurrence: US)
  Receive Date: 20240516
  Receipt Date: 20250812
  Transmission Date: 20251021
  Serious: Yes (Death, Disabling, Other)
  Sender: CHATTEM
  Company Number: US-OPELLA-2024OHG016851

PATIENT
  Sex: Male

DRUGS (6)
  1. GOLD BOND ORIGINAL STRENGTH [Suspect]
     Active Substance: MENTHOL
     Indication: Product used for unknown indication
     Route: 065
  2. NORVASC [Concomitant]
     Active Substance: AMLODIPINE BESYLATE
     Indication: Product used for unknown indication
     Dosage: TAKE 1 (ONE) TABLET?(10 MG TOTAL) BY?MOUTH ONCE DAILY
     Route: 048
  3. prochlorperazine (COMPAZINE) 10 MG tablet [Concomitant]
     Indication: Product used for unknown indication
     Dosage: TAKE 1 (ONE) TABLET (10 MG TOTAL) BY MOUTH 3 (THREE) TIMES A DAY.
     Route: 048
  4. cetirizine (ZYRTEC) 10 MG tablet [Concomitant]
     Indication: Product used for unknown indication
     Dosage: TAKE 1 TABLET BY MOUTH EVERY DAY
     Route: 048
  5. diphenhydramine (BENADRYL) 25 mg capsule [Concomitant]
     Indication: Product used for unknown indication
     Route: 048
  6. triamcinolone (KENALOG) 0.1 % cream [Concomitant]
     Indication: Product used for unknown indication
     Dosage: APPLY TOPICALLY 2 (TWO) TIMES A DAY
     Route: 061

REACTIONS (3)
  - Pleural mesothelioma malignant [Fatal]
  - Biphasic mesothelioma [Fatal]
  - Exposure to chemical pollution [Unknown]

NARRATIVE: CASE EVENT DATE: 20230501
